FAERS Safety Report 4790427-0 (Version None)
Quarter: 2005Q4

REPORT INFORMATION
  Report Type: 
  Country: None (occurrence: None)
  Receive Date: 20051005
  Receipt Date: 20050920
  Transmission Date: 20060501
  Serious: Yes (Other)
  Sender: FDA-Public Use
  Company Number: USA050496803

PATIENT
  Sex: Female

DRUGS (5)
  1. CYMBALTA [Suspect]
     Dosage: 60 MG
  2. EFFEXOR [Concomitant]
  3. MORPHINE [Concomitant]
  4. NAVANE [Concomitant]
  5. LEXAPRO [Concomitant]

REACTIONS (1)
  - SEROTONIN SYNDROME [None]
